FAERS Safety Report 6066498-0 (Version None)
Quarter: 2009Q1

REPORT INFORMATION
  Report Type: 
  Country: None (occurrence: None)
  Receive Date: 20090205
  Receipt Date: 20090127
  Transmission Date: 20090719
  Serious: Yes (Other)
  Sender: FDA-Public Use
  Company Number: US-JNJFOC-20090106802

PATIENT
  Sex: Female
  Weight: 55.79 kg

DRUGS (1)
  1. REMICADE [Suspect]
     Indication: DRUG USE FOR UNKNOWN INDICATION
     Route: 042

REACTIONS (3)
  - BURNING SENSATION [None]
  - DRUG HYPERSENSITIVITY [None]
  - SUFFOCATION FEELING [None]
